FAERS Safety Report 23747312 (Version 1)
Quarter: 2024Q2

REPORT INFORMATION
  Report Type: Spontaneous
  Country: US (occurrence: None)
  Receive Date: 20240415
  Receipt Date: 20240415
  Transmission Date: 20240716
  Serious: Yes (Disabling)
  Sender: FDA-Public Use
  Company Number: None

PATIENT
  Age: 62 Year
  Sex: Female

DRUGS (19)
  1. AUSTEDO [Suspect]
     Active Substance: DEUTETRABENAZINE
     Indication: Tardive dyskinesia
     Dosage: FREQUENCY : DAILY;?
     Route: 048
     Dates: start: 20240301, end: 20240414
  2. ABILIFY [Concomitant]
  3. azelastine 0.1% nasal spray [Concomitant]
  4. BUSPIRONE [Concomitant]
  5. ATORVASTATIN [Concomitant]
  6. CYCLOBENZAPRINE [Concomitant]
  7. deep sea 0.65% nasal spray [Concomitant]
  8. FAMOTIDINE [Concomitant]
  9. FLUOXETINE [Concomitant]
  10. GABAPENTIN [Concomitant]
  11. LEVOCETIRIZINE [Concomitant]
  12. MELOXICAM [Concomitant]
  13. mometasone 0.1% cream [Concomitant]
  14. OXCARBAZEPINE [Concomitant]
  15. OXYCODONE [Concomitant]
  16. PANTOPRAZOLE [Concomitant]
  17. PRIMIDONE [Concomitant]
  18. ROPINIROLE [Concomitant]
  19. TRAZODONE [Concomitant]

REACTIONS (3)
  - Malaise [None]
  - Impaired driving ability [None]
  - Tremor [None]

NARRATIVE: CASE EVENT DATE: 20240413
